FAERS Safety Report 11702082 (Version 1)
Quarter: 2015Q4

REPORT INFORMATION
  Report Type: Report from Study
  Country: US (occurrence: US)
  Receive Date: 20151105
  Receipt Date: 20151105
  Transmission Date: 20160304
  Serious: Yes (Hospitalization, Other)
  Sender: FDA-Public Use
  Company Number: US-AMGEN-USASL2015114518

PATIENT
  Age: 72 Year
  Sex: Female

DRUGS (2)
  1. POTASSIUM [Suspect]
     Active Substance: POTASSIUM
     Indication: BLOOD POTASSIUM DECREASED
     Route: 042
  2. PROLIA [Suspect]
     Active Substance: DENOSUMAB
     Indication: PRODUCT USED FOR UNKNOWN INDICATION
     Dosage: UNK
     Route: 065
     Dates: start: 20141009

REACTIONS (11)
  - Blood potassium decreased [Unknown]
  - Abasia [Unknown]
  - Arthralgia [Unknown]
  - Joint crepitation [Not Recovered/Not Resolved]
  - Musculoskeletal pain [Unknown]
  - Hallucination [Unknown]
  - Tremor [Unknown]
  - Speech disorder [Unknown]
  - Memory impairment [Unknown]
  - Malaise [Unknown]
  - Blood sodium decreased [Unknown]

NARRATIVE: CASE EVENT DATE: 201411
